FAERS Safety Report 5519265-8 (Version None)
Quarter: 2007Q4

REPORT INFORMATION
  Report Type: 
  Country: None (occurrence: None)
  Receive Date: 20071116
  Receipt Date: 20071106
  Transmission Date: 20080405
  Serious: Yes (Hospitalization)
  Sender: FDA-Public Use
  Company Number: FR-AVENTIS-200713496FR

PATIENT
  Age: 32 Year
  Sex: Female
  Weight: 80 kg

DRUGS (7)
  1. ARAVA [Suspect]
     Indication: RHEUMATOID ARTHRITIS
     Route: 048
  2. CORTANCYL [Suspect]
     Indication: RHEUMATOID ARTHRITIS
     Route: 048
  3. ENBREL [Suspect]
     Indication: RHEUMATOID ARTHRITIS
     Route: 058
  4. APRANAX                            /00256201/ [Suspect]
     Route: 048
  5. EUPANTOL                           /01263201/ [Suspect]
     Route: 048
     Dates: end: 20070927
  6. DAFALGAN                           /00020001/ [Suspect]
     Indication: RHEUMATOID ARTHRITIS
     Route: 048
     Dates: end: 20070927
  7. LOPERAMIDE HCL [Suspect]
     Route: 048
     Dates: start: 20070922, end: 20070925

REACTIONS (5)
  - CHEST PAIN [None]
  - ERYTHEMA NODOSUM [None]
  - MOUTH ULCERATION [None]
  - TACHYCARDIA [None]
  - UVEITIS [None]
